FAERS Safety Report 7177608-6 (Version None)
Quarter: 2010Q4

REPORT INFORMATION
  Report Type: 
  Country: None (occurrence: None)
  Receive Date: 20101220
  Receipt Date: 20101122
  Transmission Date: 20110411
  Serious: Yes (Other)
  Sender: FDA-Public Use
  Company Number: US-PFIZER INC-HQWYE452728JUN06

PATIENT
  Sex: Female

DRUGS (3)
  1. PREMARIN [Suspect]
     Dosage: UNK
  2. MEDROXYPROGESTERONE ACETATE [Suspect]
  3. PROVERA [Suspect]

REACTIONS (1)
  - OVARIAN CANCER [None]
